FAERS Safety Report 5747320-6 (Version None)
Quarter: 2008Q2

REPORT INFORMATION
  Report Type: 
  Country: None (occurrence: None)
  Receive Date: 20080523
  Receipt Date: 20080510
  Transmission Date: 20081010
  Serious: Yes (Hospitalization, Disabling)
  Sender: FDA-Public Use
  Company Number: US-BAYER-US-2007-009989

PATIENT
  Age: 33 Year
  Sex: Male
  Weight: 73 kg

DRUGS (24)
  1. MAGNEVIST [Suspect]
     Indication: NUCLEAR MAGNETIC RESONANCE IMAGING BRAIN
     Dosage: UNIT DOSE: 0.1 MMOL
     Route: 042
     Dates: start: 20031216, end: 20031216
  2. MAGNEVIST [Suspect]
     Dosage: UNIT DOSE: 0.1 MMOL
     Route: 042
     Dates: start: 20040115, end: 20040115
  3. MAGNEVIST [Suspect]
     Dosage: UNIT DOSE: 0.1 MMOL
     Route: 042
     Dates: start: 20040225, end: 20040225
  4. MAGNEVIST [Suspect]
     Dosage: UNIT DOSE: 17 ML
     Route: 042
     Dates: start: 20040706, end: 20040706
  5. TRAZODONE HCL [Concomitant]
     Dosage: UNIT DOSE: 50 MG
     Route: 048
  6. PAXIL [Concomitant]
     Dosage: UNIT DOSE: 20 MG
     Route: 048
  7. NEPHRO-VITE RX [Concomitant]
     Dosage: UNIT DOSE: 1 MG
     Route: 048
  8. FOLIC ACID [Concomitant]
     Dosage: UNIT DOSE: 1 MG
     Route: 048
  9. PROTONIX [Concomitant]
     Dosage: UNIT DOSE: 40 MG
     Route: 048
  10. ZELNORM /USA/ [Concomitant]
     Indication: NAUSEA
     Dosage: UNIT DOSE: 6 MG
     Route: 048
  11. SENNA [Concomitant]
     Route: 048
  12. BISACODYL [Concomitant]
     Route: 048
  13. DARBEPOETIN ALFA [Concomitant]
     Dosage: UNIT DOSE: 40 ?G
     Route: 058
  14. OXYCONTIN [Concomitant]
     Dosage: UNIT DOSE: 20 MG
     Route: 048
  15. NEURONTIN [Concomitant]
     Dosage: UNIT DOSE: 300 MG
     Route: 048
  16. PHOSLO [Concomitant]
     Dosage: UNIT DOSE: 1334 MG
     Route: 048
  17. COLACE [Concomitant]
     Dosage: UNIT DOSE: 100 MG
     Route: 048
  18. CITRUCEL [Concomitant]
     Route: 048
  19. CLARITIN [Concomitant]
     Dosage: UNIT DOSE: 10 MG
     Route: 048
  20. COUMADIN [Concomitant]
     Indication: DEEP VEIN THROMBOSIS
     Dosage: UNIT DOSE: 6 MG
     Route: 048
  21. BACTROBAN [Concomitant]
     Route: 061
  22. DULCOLAX [Concomitant]
     Dosage: UNIT DOSE: 10 MG
     Route: 048
  23. FERRLECIT /USA/ [Concomitant]
     Indication: NEPHROGENIC ANAEMIA
     Route: 042
  24. ANZEMET [Concomitant]

REACTIONS (30)
  - ANGER [None]
  - ANXIETY [None]
  - ARTERIOVENOUS FISTULA THROMBOSIS [None]
  - DEPRESSION [None]
  - DYSKINESIA [None]
  - DYSPHAGIA [None]
  - EXTREMITY CONTRACTURE [None]
  - HYPOAESTHESIA [None]
  - JOINT CONTRACTURE [None]
  - JOINT RANGE OF MOTION DECREASED [None]
  - JOINT STIFFNESS [None]
  - MOBILITY DECREASED [None]
  - MUSCLE TIGHTNESS [None]
  - MUSCULOSKELETAL STIFFNESS [None]
  - NEPHROGENIC SYSTEMIC FIBROSIS [None]
  - NERVE COMPRESSION [None]
  - OEDEMA [None]
  - PAIN OF SKIN [None]
  - PARAESTHESIA [None]
  - PROSTATIC DISORDER [None]
  - SELF ESTEEM DECREASED [None]
  - SKIN DISCOLOURATION [None]
  - SKIN FIBROSIS [None]
  - SKIN INDURATION [None]
  - SPEECH DISORDER [None]
  - SWELLING [None]
  - TENDON DISORDER [None]
  - TONGUE DISORDER [None]
  - URETHRAL STENOSIS [None]
  - URINARY TRACT OBSTRUCTION [None]
